FAERS Safety Report 9927834 (Version 1)
Quarter: 2014Q1

REPORT INFORMATION
  Report Type: Spontaneous
  Country: DE (occurrence: None)
  Receive Date: 20140220
  Receipt Date: 20140220
  Transmission Date: 20141002
  Serious: Yes (Hospitalization)
  Sender: FDA-Public Use
  Company Number: AUR-APL-2014-01552

PATIENT
  Sex: Male
  Weight: 110 kg

DRUGS (4)
  1. SIMVASTATIN [Suspect]
     Indication: LOW DENSITY LIPOPROTEIN INCREASED
     Dosage: (40 MG, 1 D),ORAL
     Route: 048
     Dates: start: 2006
  2. EZETROL [Suspect]
     Indication: LOW DENSITY LIPOPROTEIN INCREASED
     Dosage: (10 MG, 1 D),ORAL
     Route: 048
     Dates: start: 200504, end: 200604
  3. SORTIS (ATORVASTATIN CALCIUM) [Suspect]
     Indication: LOW DENSITY LIPOPROTEIN INCREASED
     Dosage: (20 MG, 1 D),ORAL
     Route: 048
     Dates: start: 2006
  4. NIASPAN [Suspect]
     Indication: LOW DENSITY LIPOPROTEIN INCREASED
     Dosage: (375 MG, 1 D),ORAL
     Route: 048
     Dates: start: 200611, end: 200704

REACTIONS (5)
  - Myopathy [None]
  - Restlessness [None]
  - Hot flush [None]
  - Skin warm [None]
  - Skin burning sensation [None]
